FAERS Safety Report 9613445 (Version 1)
Quarter: 2013Q4

REPORT INFORMATION
  Report Type: Spontaneous
  Country: US (occurrence: US)
  Receive Date: 20131010
  Receipt Date: 20131010
  Transmission Date: 20140711
  Serious: No
  Sender: FDA-Public Use
  Company Number: US-PFIZER INC-2013291543

PATIENT
  Age: 52 Year
  Sex: Female
  Weight: 62.1 kg

DRUGS (3)
  1. ZOLOFT [Suspect]
     Indication: DEPRESSION
     Dosage: 75MG (BY SPLITTING A TABLET OF 100MG), 1X/DAY
     Route: 048
     Dates: start: 2013
  2. ZOLOFT [Suspect]
     Indication: OBSESSIVE-COMPULSIVE DISORDER
  3. ARMOUR THYROID [Concomitant]
     Indication: THYROID DISORDER
     Dosage: UNK

REACTIONS (4)
  - Arthritis [Unknown]
  - Carpal tunnel syndrome [Unknown]
  - Tendon disorder [Unknown]
  - Wrong technique in drug usage process [Unknown]
